FAERS Safety Report 6360226-7 (Version None)
Quarter: 2009Q3

REPORT INFORMATION
  Report Type: 
  Country: None (occurrence: None)
  Receive Date: 20090917
  Receipt Date: 20090910
  Transmission Date: 20100115
  Serious: Yes (Death)
  Sender: FDA-Public Use
  Company Number: IN-BAXTER-2009BH013405

PATIENT
  Age: 63 Year
  Sex: Male

DRUGS (2)
  1. DIANEAL [Suspect]
     Indication: PERITONEAL DIALYSIS
     Route: 033
     Dates: start: 20090801, end: 20090801
  2. DIANEAL [Suspect]
     Route: 033
     Dates: start: 20090801, end: 20090801

REACTIONS (1)
  - MYOCARDIAL INFARCTION [None]
